FAERS Safety Report 12685879 (Version 2)
Quarter: 2016Q4

REPORT INFORMATION
  Report Type: Spontaneous
  Country: US (occurrence: US)
  Receive Date: 20160825
  Receipt Date: 20161013
  Transmission Date: 20170207
  Serious: Yes (Hospitalization, Other)
  Sender: FDA-Public Use
  Company Number: US-BRISTOL-MYERS SQUIBB COMPANY-BMS-2016-068018

PATIENT
  Sex: Male
  Weight: 99.7 kg

DRUGS (1)
  1. OPDIVO [Suspect]
     Active Substance: NIVOLUMAB
     Indication: RENAL CELL CARCINOMA
     Dosage: UNK
     Route: 065
     Dates: start: 201606, end: 201607

REACTIONS (4)
  - Fatigue [Unknown]
  - Dyspnoea [Unknown]
  - Myasthenia gravis [Unknown]
  - Chest pain [Unknown]
